FAERS Safety Report 26079546 (Version 1)
Quarter: 2025Q4

REPORT INFORMATION
  Report Type: Spontaneous
  Country: US (occurrence: US)
  Receive Date: 20251123
  Receipt Date: 20251123
  Transmission Date: 20260117
  Serious: No
  Sender: SANOFI AVENTIS
  Company Number: US-SA-2025SA344504

PATIENT
  Sex: Male

DRUGS (14)
  1. DUPIXENT [Suspect]
     Active Substance: DUPILUMAB
     Indication: Essential hypertension
     Dosage: 300 MG, QOW
     Route: 058
  2. AMLODIPINE BESYLATE [Concomitant]
     Active Substance: AMLODIPINE BESYLATE
  3. GABAPENTIN [Concomitant]
     Active Substance: GABAPENTIN
  4. GLIMEPIRIDE [Concomitant]
     Active Substance: GLIMEPIRIDE
  5. MAGNESIUM OXIDE [Concomitant]
     Active Substance: MAGNESIUM OXIDE
  6. METOPROLOL TARTRATE [Concomitant]
     Active Substance: METOPROLOL TARTRATE
  7. PROBENECID [Concomitant]
     Active Substance: PROBENECID
  8. STOOL SOFTENER (DOCUSATE) [Concomitant]
     Active Substance: DOCUSATE
  9. VITAMIN D3 [Concomitant]
     Active Substance: CHOLECALCIFEROL
  10. ATORVASTATIN [Concomitant]
     Active Substance: ATORVASTATIN
  11. MONTELUKAST [Concomitant]
     Active Substance: MONTELUKAST
  12. VITAMINS NOS [Concomitant]
     Active Substance: VITAMINS
  13. PANTOPRAZOLE [Concomitant]
     Active Substance: PANTOPRAZOLE
  14. MINERALS\VITAMINS [Concomitant]
     Active Substance: MINERALS\VITAMINS

REACTIONS (1)
  - Drug ineffective for unapproved indication [Unknown]
